FAERS Safety Report 6345717-7 (Version None)
Quarter: 2009Q3

REPORT INFORMATION
  Report Type: 
  Country: None (occurrence: None)
  Receive Date: 20090909
  Receipt Date: 20090824
  Transmission Date: 20100115
  Serious: Yes (Hospitalization)
  Sender: FDA-Public Use
  Company Number: US-RB-020210-09

PATIENT
  Age: 4 Year
  Sex: Male

DRUGS (1)
  1. LYSOL HAND SANITIZER FOAM [Suspect]

REACTIONS (4)
  - BLOOD ALCOHOL INCREASED [None]
  - INCORRECT ROUTE OF DRUG ADMINISTRATION [None]
  - LETHARGY [None]
  - VISION BLURRED [None]
